FAERS Safety Report 8857532 (Version 1)
Quarter: 2012Q4

REPORT INFORMATION
  Report Type: 
  Country: SV (occurrence: SV)
  Receive Date: 20121024
  Receipt Date: 20121024
  Transmission Date: 20130627
  Serious: Yes (Life-Threatening, Hospitalization)
  Sender: FDA-Public Use
  Company Number: SV-GLAXOSMITHKLINE-A0998539A

PATIENT
  Age: 54 Year
  Sex: Male

DRUGS (1)
  1. ZINNAT [Suspect]
     Indication: RESPIRATORY TRACT INFECTION
     Dosage: 250MG Unknown
     Route: 048
     Dates: start: 20121016, end: 20121016

REACTIONS (4)
  - Anaphylactic reaction [Recovered/Resolved]
  - Eyelid oedema [Recovered/Resolved]
  - Dehydration [Recovered/Resolved]
  - Wheezing [Recovered/Resolved]
